FAERS Safety Report 14672276 (Version 4)
Quarter: 2018Q2

REPORT INFORMATION
  Report Type: Report from Study
  Country: CA (occurrence: CA)
  Receive Date: 20180323
  Receipt Date: 20180614
  Transmission Date: 20180711
  Serious: Yes (Death, Other)
  Sender: FDA-Public Use
  Company Number: CA-ROCHE-2090851

PATIENT
  Sex: Male

DRUGS (17)
  1. CELLCEPT [Suspect]
     Active Substance: MYCOPHENOLATE MOFETIL\MYCOPHENOLATE MOFETIL HYDROCHLORIDE
     Indication: PULMONARY FIBROSIS
     Route: 048
  2. ESBRIET [Suspect]
     Active Substance: PIRFENIDONE
     Route: 048
     Dates: start: 20180310
  3. PREDNISONE. [Concomitant]
     Active Substance: PREDNISONE
     Route: 065
  4. ANORO ELLIPTA [Concomitant]
     Active Substance: UMECLIDINIUM BROMIDE\VILANTEROL TRIFENATATE
     Dosage: 62.5/25MCG ONE INHALATION DAILY
     Route: 065
  5. ALLOPURINOL. [Concomitant]
     Active Substance: ALLOPURINOL
  6. ESBRIET [Suspect]
     Active Substance: PIRFENIDONE
     Indication: IDIOPATHIC PULMONARY FIBROSIS
     Route: 048
     Dates: start: 20180302
  7. SEPTRA SS [Concomitant]
     Dosage: 1 TABLET DAILY
     Route: 065
  8. ESBRIET [Suspect]
     Active Substance: PIRFENIDONE
     Route: 048
     Dates: start: 20180317
  9. ESBRIET [Suspect]
     Active Substance: PIRFENIDONE
     Route: 048
     Dates: start: 2018, end: 2018
  10. ACTONEL [Concomitant]
     Active Substance: RISEDRONATE SODIUM
     Route: 065
  11. DILTIAZEM. [Concomitant]
     Active Substance: DILTIAZEM
  12. PANTOPRAZOLE [Concomitant]
     Active Substance: PANTOPRAZOLE
     Route: 065
  13. HYDROMORPHONE [Concomitant]
     Active Substance: HYDROMORPHONE
     Indication: DYSPNOEA
     Dosage: 3MG Q12H IN ADDITION TO 1MG EVERY 4 HR PRN
     Route: 065
  14. RAMIPRIL. [Concomitant]
     Active Substance: RAMIPRIL
  15. GEMFIBROZIL. [Concomitant]
     Active Substance: GEMFIBROZIL
  16. METOPROLOL. [Concomitant]
     Active Substance: METOPROLOL
  17. SENOKOT [Concomitant]
     Active Substance: SENNOSIDES

REACTIONS (2)
  - Pulmonary fibrosis [Unknown]
  - Computerised tomogram abnormal [Unknown]
